FAERS Safety Report 8474649-3 (Version None)
Quarter: 2012Q2

REPORT INFORMATION
  Report Type: 
  Country: None (occurrence: None)
  Receive Date: 20120628
  Receipt Date: 20120621
  Transmission Date: 20120825
  Serious: Yes (Other)
  Sender: FDA-Public Use
  Company Number: KR-COVIDIEN/TYCO HEALTHCARE/MALLINCKRODT-T201202648

PATIENT
  Age: 31 Year
  Sex: Female

DRUGS (1)
  1. PENNSAID [Suspect]
     Indication: PRODUCT USED FOR UNKNOWN INDICATION
     Dosage: UNK

REACTIONS (1)
  - ANGIOEDEMA [None]
